FAERS Safety Report 20626731 (Version 1)
Quarter: 2022Q1

REPORT INFORMATION
  Report Type: Spontaneous
  Country: US (occurrence: None)
  Receive Date: 20220322
  Receipt Date: 20220322
  Transmission Date: 20220423
  Serious: No
  Sender: FDA-Public Use
  Company Number: None

PATIENT
  Age: 84 Year
  Sex: Female
  Weight: 77.11 kg

DRUGS (2)
  1. ORENCIA [Suspect]
     Active Substance: ABATACEPT
     Indication: Rheumatoid arthritis
     Dosage: FREQUENCY : WEEKLY;?
     Route: 058
     Dates: start: 201804
  2. ORENCIA [Suspect]
     Active Substance: ABATACEPT
     Indication: Senile osteoporosis

REACTIONS (4)
  - Cough [None]
  - Pain [None]
  - Musculoskeletal chest pain [None]
  - Therapy interrupted [None]
